APPROVED DRUG PRODUCT: OXYCODONE HYDROCHLORIDE
Active Ingredient: OXYCODONE HYDROCHLORIDE
Strength: 15MG
Dosage Form/Route: TABLET;ORAL
Application: A090895 | Product #002 | TE Code: AB
Applicant: EPIC PHARMA LLC
Approved: Aug 24, 2009 | RLD: No | RS: No | Type: RX